FAERS Safety Report 5892329-5 (Version None)
Quarter: 2008Q3

REPORT INFORMATION
  Report Type: 
  Country: None (occurrence: None)
  Receive Date: 20080923
  Receipt Date: 20080912
  Transmission Date: 20090109
  Serious: Yes (Other)
  Sender: FDA-Public Use
  Company Number: GB-RANBAXY-2008RR-18047

PATIENT
  Age: 60 Year
  Sex: Male
  Weight: 119 kg

DRUGS (4)
  1. SIMVASTATIN 5MG TABLETS [Suspect]
     Indication: PROPHYLAXIS
     Dosage: 40 MG, UNK
     Route: 048
     Dates: start: 20080829, end: 20080902
  2. DICLOFENAC [Concomitant]
     Dosage: 50 MG, BID
     Dates: start: 20080609
  3. NAPROXEN [Concomitant]
     Dosage: 500 MG, BID
     Dates: start: 20080805
  4. OMEPRAZOLE [Concomitant]
     Dosage: 10 MG, QD

REACTIONS (5)
  - CHILLS [None]
  - DRUG INTOLERANCE [None]
  - MYALGIA [None]
  - NAUSEA [None]
  - PAIN [None]
